APPROVED DRUG PRODUCT: ATOMOXETINE HYDROCHLORIDE
Active Ingredient: ATOMOXETINE HYDROCHLORIDE
Strength: EQ 60MG BASE
Dosage Form/Route: CAPSULE;ORAL
Application: A090609 | Product #005 | TE Code: AB
Applicant: DR REDDYS LABORATORIES LTD
Approved: Feb 23, 2018 | RLD: No | RS: No | Type: RX